FAERS Safety Report 20063141 (Version 1)
Quarter: 2021Q4

REPORT INFORMATION
  Report Type: Spontaneous
  Country: GB (occurrence: None)
  Receive Date: 20211112
  Receipt Date: 20211112
  Transmission Date: 20220303
  Serious: Yes (Hospitalization, Other)
  Sender: FDA-Public Use
  Company Number: 2021A797073

PATIENT
  Age: 61 Year
  Sex: Male
  Weight: 69 kg

DRUGS (7)
  1. DAPAGLIFLOZIN [Suspect]
     Active Substance: DAPAGLIFLOZIN
     Indication: Type 1 diabetes mellitus
     Dosage: 5 EVERY DAY
     Route: 048
     Dates: start: 20190801, end: 20211016
  2. ATORVASTATIN [Concomitant]
     Active Substance: ATORVASTATIN
     Dosage: 20 EVERY DAY
     Route: 065
  3. AMITRIPTYLINE [Concomitant]
     Active Substance: AMITRIPTYLINE
     Dosage: 5 EVERY DAY
     Route: 065
  4. NOVORAPID [Concomitant]
     Active Substance: INSULIN ASPART
     Route: 065
  5. LANSOPRAZOLE [Concomitant]
     Active Substance: LANSOPRAZOLE
     Dosage: 15 EVERY DAY
     Route: 065
  6. OZEMPIC [Concomitant]
     Active Substance: SEMAGLUTIDE
     Dosage: 1 ONCE A WEEK
     Route: 065
  7. SEMAGLUTIDE [Concomitant]
     Active Substance: SEMAGLUTIDE
     Dosage: 1 ONCE A WEEK
     Route: 065

REACTIONS (4)
  - Penile pain [Unknown]
  - Skin lesion [Unknown]
  - Diabetic ketoacidosis [Recovered/Resolved]
  - Balanitis candida [Recovered/Resolved]

NARRATIVE: CASE EVENT DATE: 20201201
